FAERS Safety Report 8158876-0 (Version None)
Quarter: 2012Q1

REPORT INFORMATION
  Report Type: 
  Country: None (occurrence: None)
  Receive Date: 20120223
  Receipt Date: 20120221
  Transmission Date: 20120608
  Serious: Yes (Hospitalization)
  Sender: FDA-Public Use
  Company Number: US-PFIZER INC-2012045846

PATIENT
  Sex: Female
  Weight: 76.644 kg

DRUGS (2)
  1. NEURONTIN [Suspect]
     Dosage: UNK
  2. NEURONTIN [Suspect]
     Indication: PAIN IN EXTREMITY
     Dosage: 100 MG, 3X/DAY

REACTIONS (2)
  - CERVICAL VERTEBRAL FRACTURE [None]
  - FALL [None]
